FAERS Safety Report 25159698 (Version 1)
Quarter: 2025Q2

REPORT INFORMATION
  Report Type: Report from Study
  Country: US (occurrence: US)
  Receive Date: 20250404
  Receipt Date: 20250404
  Transmission Date: 20250716
  Serious: Yes (Other)
  Sender: SERVIER
  Company Number: US-SERVIER-S25001559

PATIENT

DRUGS (2)
  1. TIBSOVO [Suspect]
     Active Substance: IVOSIDENIB
     Indication: Acute myeloid leukaemia
     Dosage: 250 MG, QD
     Route: 048
     Dates: start: 20250108, end: 202502
  2. TIBSOVO [Suspect]
     Active Substance: IVOSIDENIB
     Dosage: 250 MG, QD
     Route: 048
     Dates: start: 202502

REACTIONS (3)
  - Full blood count decreased [Unknown]
  - Depressed mood [Unknown]
  - Underdose [Recovered/Resolved]

NARRATIVE: CASE EVENT DATE: 20250108
